FAERS Safety Report 8523216-1 (Version None)
Quarter: 2012Q3

REPORT INFORMATION
  Report Type: 
  Country: None (occurrence: None)
  Receive Date: 20120720
  Receipt Date: 20120712
  Transmission Date: 20120928
  Serious: No
  Sender: FDA-Public Use
  Company Number: US-BAYER-2012-070723

PATIENT
  Age: 36 Year
  Sex: Female

DRUGS (4)
  1. IBUPROFEN [Concomitant]
     Dosage: 800 MG, UNK
  2. CEPHALEXIN [Concomitant]
     Dosage: 500 MG, UNK
  3. YAZ [Suspect]
  4. CYCLOBENZAPRINE [Concomitant]
     Dosage: 10 MG, UNK

REACTIONS (1)
  - THROMBOPHLEBITIS SUPERFICIAL [None]
